FAERS Safety Report 13386326 (Version 2)
Quarter: 2017Q1

REPORT INFORMATION
  Report Type: Spontaneous
  Country: GB (occurrence: GB)
  Receive Date: 20170330
  Receipt Date: 20170330
  Transmission Date: 20170429
  Serious: Yes (Other)
  Sender: FDA-Public Use
  Company Number: GB-CIPLA LTD.-2017GB04627

PATIENT

DRUGS (4)
  1. MACROGOL [Concomitant]
     Active Substance: POLYETHYLENE GLYCOLS
     Dosage: UNK, USE AS DIRECTED
     Route: 065
     Dates: start: 20150527
  2. MESALAZINE [Concomitant]
     Active Substance: MESALAMINE
     Dosage: UNK, USE AS DIRECTED
     Route: 065
     Dates: start: 20150527
  3. METOCLOPRAMIDE. [Concomitant]
     Active Substance: METOCLOPRAMIDE
     Dosage: 1 DF, TID
     Route: 065
     Dates: start: 20150527
  4. TOPIRAMATE. [Suspect]
     Active Substance: TOPIRAMATE
     Dosage: UNK
     Route: 065
     Dates: start: 20160429

REACTIONS (2)
  - Lip swelling [Recovered/Resolved]
  - Pain in jaw [Recovered/Resolved]

NARRATIVE: CASE EVENT DATE: 20160429
